FAERS Safety Report 17914828 (Version 32)
Quarter: 2023Q1

REPORT INFORMATION
  Report Type: Report from Study
  Country: US (occurrence: US)
  Receive Date: 20200618
  Receipt Date: 20230106
  Transmission Date: 20230417
  Serious: Yes (Life-Threatening, Hospitalization, Other)
  Sender: FDA-Public Use
  Company Number: NVSC2019US091358

PATIENT
  Sex: Female
  Weight: 10.6 kg

DRUGS (11)
  1. ZOLGENSMA [Suspect]
     Active Substance: ONASEMNOGENE ABEPARVOVEC-XIOI
     Indication: Spinal muscular atrophy
     Dosage: 35.8 ML, ONCE/SINGLE (1.1 X E14VG/KG)
     Route: 042
     Dates: start: 20190920, end: 20190920
  2. ATROVENT [Concomitant]
     Active Substance: IPRATROPIUM BROMIDE
     Indication: Product used for unknown indication
     Dosage: 2 SPRAYS, BID
     Route: 048
     Dates: start: 20190909
  3. PULMOZYME [Concomitant]
     Active Substance: DORNASE ALFA
     Indication: Product used for unknown indication
     Dosage: UNK UNK, BID
     Route: 065
     Dates: start: 20190919, end: 20190919
  4. PREDNISOLONE [Concomitant]
     Active Substance: PREDNISOLONE
     Indication: Prophylaxis
     Dosage: 1 MG/KG, QD
     Route: 065
     Dates: start: 20190916, end: 20191110
  5. PREDNISOLONE [Concomitant]
     Active Substance: PREDNISOLONE
     Indication: Prophylaxis
     Dosage: 6.5 MG
     Route: 065
     Dates: start: 20190916, end: 20191020
  6. PREDNISOLONE [Concomitant]
     Active Substance: PREDNISOLONE
     Dosage: 5.25 MG
     Route: 065
     Dates: start: 20191021, end: 20191027
  7. PREDNISOLONE [Concomitant]
     Active Substance: PREDNISOLONE
     Dosage: 3.5 MG
     Route: 065
     Dates: start: 20191028, end: 20191103
  8. PREDNISOLONE [Concomitant]
     Active Substance: PREDNISOLONE
     Dosage: 1.75 MG
     Route: 065
     Dates: start: 20191104, end: 20191110
  9. PREVNAR 13 [Concomitant]
     Active Substance: PNEUMOCOCCAL 13-VALENT CONJUGATE VACCINE
     Indication: Product used for unknown indication
     Dosage: 0.5 ML, ONCE/SINGLE
     Route: 065
     Dates: start: 20190926, end: 20190926
  10. FLUARIX NOS [Concomitant]
     Active Substance: INFLUENZA VIRUS VACCINE
     Indication: Product used for unknown indication
     Dosage: 0.5 ML, ONCE/SINGLE
     Route: 065
     Dates: start: 20190926, end: 20190926
  11. LEVAQUIN [Concomitant]
     Active Substance: LEVOFLOXACIN
     Indication: Respiratory tract infection
     Dosage: UNK
     Route: 065
     Dates: start: 20200307, end: 20200707

REACTIONS (71)
  - Thrombotic microangiopathy [Recovered/Resolved]
  - Haemolytic uraemic syndrome [Recovered/Resolved]
  - Haematuria [Unknown]
  - Proteinuria [Recovering/Resolving]
  - Haemoglobin decreased [Unknown]
  - Hypoalbuminaemia [Recovered/Resolved]
  - Haemolytic anaemia [Unknown]
  - Agitation [Not Recovered/Not Resolved]
  - Renal impairment [Not Recovered/Not Resolved]
  - Pneumonia aspiration [Recovered/Resolved]
  - Platelet count decreased [Unknown]
  - Red blood cell count decreased [Unknown]
  - Haematocrit decreased [Unknown]
  - Blood urea increased [Unknown]
  - Respiratory distress [Recovered/Resolved]
  - Tachycardia [Recovered/Resolved]
  - Tachypnoea [Recovered/Resolved]
  - Secretion discharge [Recovered/Resolved]
  - Dyspnoea [Recovered/Resolved]
  - Clostridium difficile colitis [Recovered/Resolved]
  - Pneumonia [Recovered/Resolved]
  - Aspiration [Recovered/Resolved]
  - Acinetobacter test positive [Recovered/Resolved]
  - Atelectasis [Recovered/Resolved]
  - Rhinovirus infection [Recovered/Resolved]
  - Rhinovirus infection [Recovered/Resolved]
  - Tracheitis [Recovered/Resolved]
  - Dyspnoea [Recovered/Resolved]
  - Renal vein thrombosis [Unknown]
  - Haematochezia [Unknown]
  - Blood pressure increased [Unknown]
  - Thrombocytopenia [Unknown]
  - Pneumonia acinetobacter [Recovered/Resolved]
  - Pasteurella infection [Recovered/Resolved]
  - Enterovirus infection [Recovered/Resolved]
  - Cellulitis [Recovered/Resolved]
  - Dependence on respirator [Unknown]
  - White blood cell count increased [Unknown]
  - Pseudomonas infection [Recovered/Resolved]
  - Fluid retention [Unknown]
  - Weight increased [Unknown]
  - Generalised oedema [Unknown]
  - Peripheral swelling [Unknown]
  - Aspartate aminotransferase increased [Recovered/Resolved]
  - Blood urine present [Unknown]
  - Heart rate decreased [Unknown]
  - Pain [Unknown]
  - Blood creatinine increased [Recovered/Resolved]
  - Reticulocyte count increased [Unknown]
  - Blood lactate dehydrogenase increased [Unknown]
  - Oedema [Unknown]
  - Hypertension [Unknown]
  - Red blood cell schistocytes present [Unknown]
  - Microangiopathic haemolytic anaemia [Unknown]
  - Blood pressure decreased [Unknown]
  - Abdominal distension [Unknown]
  - Sedation [Unknown]
  - Blood potassium abnormal [Unknown]
  - Blood glucose abnormal [Unknown]
  - Blood urea abnormal [Unknown]
  - Liver function test increased [Recovering/Resolving]
  - Vomiting [Unknown]
  - Pasteurella test positive [Recovered/Resolved]
  - Staphylococcus test positive [Recovered/Resolved]
  - Medical device site cellulitis [Recovered/Resolved]
  - Tracheitis [Recovered/Resolved]
  - Coronavirus infection [Recovered/Resolved]
  - Respiratory syncytial virus infection [Recovered/Resolved]
  - Scoliosis [Not Recovered/Not Resolved]
  - Dermatitis diaper [Recovered/Resolved]
  - Stoma site cellulitis [Recovered/Resolved]

NARRATIVE: CASE EVENT DATE: 20190923
